FAERS Safety Report 20609094 (Version 1)
Quarter: 2022Q1

REPORT INFORMATION
  Report Type: Spontaneous
  Country: JP (occurrence: JP)
  Receive Date: 20220317
  Receipt Date: 20220317
  Transmission Date: 20220423
  Serious: Yes (Other)
  Sender: FDA-Public Use
  Company Number: JP-Merck Healthcare KGaA-9305383

PATIENT

DRUGS (2)
  1. ERBITUX [Suspect]
     Active Substance: CETUXIMAB
     Indication: Colon cancer
     Dosage: UNK, UNKNOWN
     Route: 041
  2. BRAFTOVI [Concomitant]
     Active Substance: ENCORAFENIB
     Indication: Colon cancer
     Dosage: UNK

REACTIONS (1)
  - Pneumocystis jirovecii pneumonia [Recovering/Resolving]
